FAERS Safety Report 12246219 (Version 1)
Quarter: 2016Q2

REPORT INFORMATION
  Report Type: Report from Study
  Country: VE (occurrence: VE)
  Receive Date: 20160407
  Receipt Date: 20160407
  Transmission Date: 20160815
  Serious: Yes (Other)
  Sender: FDA-Public Use
  Company Number: PHHY2015VE156617

PATIENT
  Sex: Female

DRUGS (2)
  1. AFINITOR [Suspect]
     Active Substance: EVEROLIMUS
     Indication: NEUROENDOCRINE TUMOUR
     Dosage: 10 MG, QD
     Route: 048
     Dates: start: 20151018
  2. SANDOSTATIN LAR DEPOT [Suspect]
     Active Substance: OCTREOTIDE ACETATE
     Indication: NEUROENDOCRINE TUMOUR
     Dosage: 20 MG, QMO (MONTHLY)
     Route: 065
     Dates: start: 20151001

REACTIONS (6)
  - Abdominal adhesions [Recovering/Resolving]
  - Vomiting [Unknown]
  - Dizziness [Unknown]
  - Neoplasm malignant [Recovering/Resolving]
  - Anxiety [Recovering/Resolving]
  - Insomnia [Unknown]
